FAERS Safety Report 8776282 (Version 1)
Quarter: 2012Q4

REPORT INFORMATION
  Report Type: 
  Country: US (occurrence: US)
  Receive Date: 20120910
  Receipt Date: 20120910
  Transmission Date: 20130627
  Serious: No
  Sender: FDA-Public Use
  Company Number: US-PFIZER INC-2012221238

PATIENT
  Sex: Female

DRUGS (1)
  1. GABAPENTIN [Suspect]
     Indication: NEURALGIA
     Dosage: UNK

REACTIONS (4)
  - Dysgeusia [Unknown]
  - Toothache [Unknown]
  - Glossodynia [Unknown]
  - Tooth repair [Unknown]
